FAERS Safety Report 8028006-4 (Version None)
Quarter: 2012Q1

REPORT INFORMATION
  Report Type: 
  Country: None (occurrence: None)
  Receive Date: 20120104
  Receipt Date: 20111222
  Transmission Date: 20120608
  Serious: Yes (Hospitalization)
  Sender: FDA-Public Use
  Company Number: US-GDP-11412632

PATIENT
  Sex: Female
  Weight: 97 kg

DRUGS (7)
  1. ORACEA [Suspect]
     Indication: ROSACEA
     Dosage: (40 MG QD ORAL)
     Route: 048
     Dates: start: 20111118, end: 20111204
  2. METROGEL [Suspect]
     Indication: ROSACEA
     Dosage: (1 DF QD TOPICAL)
     Route: 061
     Dates: start: 20111118, end: 20111204
  3. CELEXA [Concomitant]
  4. ORLISTAT [Concomitant]
  5. CALCIUM [Concomitant]
  6. ASCORBIC ACID [Concomitant]
  7. COELCALCIFEROL [Concomitant]

REACTIONS (1)
  - DIVERTICULITIS [None]
